FAERS Safety Report 18085190 (Version 2)
Quarter: 2020Q3

REPORT INFORMATION
  Report Type: Spontaneous
  Country: US (occurrence: US)
  Receive Date: 20200728
  Receipt Date: 20200807
  Transmission Date: 20201103
  Serious: Yes (Other)
  Sender: FDA-Public Use
  Company Number: US-ALLERGAN-2027583US

PATIENT
  Sex: Female

DRUGS (11)
  1. FLONASE [Concomitant]
     Active Substance: FLUTICASONE PROPIONATE
     Indication: MYCOTIC ALLERGY
  2. MINERALS NOS [Concomitant]
     Active Substance: MINERALS
     Dosage: UNK
     Dates: end: 20200723
  3. VITAMINS [Concomitant]
     Active Substance: VITAMINS
     Dosage: UNK
     Dates: end: 20200723
  4. CALCIUM [Concomitant]
     Active Substance: CALCIUM
     Dosage: UNK
     Dates: end: 20200723
  5. SUCRALFATE TABLET [Suspect]
     Active Substance: SUCRALFATE
     Indication: GASTRIC ULCER
  6. SUCRALFATE TABLET [Suspect]
     Active Substance: SUCRALFATE
     Indication: GASTROOESOPHAGEAL REFLUX DISEASE
     Dosage: 1 G, QID
     Route: 048
     Dates: start: 202007
  7. FAMOTIDINE. [Suspect]
     Active Substance: FAMOTIDINE
     Indication: GASTROOESOPHAGEAL REFLUX DISEASE
     Dosage: UNK
     Route: 048
     Dates: end: 20200710
  8. FAMOTIDINE. [Suspect]
     Active Substance: FAMOTIDINE
     Indication: GASTRIC ULCER
  9. KEPPRA [Concomitant]
     Active Substance: LEVETIRACETAM
     Indication: SEIZURE
     Route: 048
  10. LAMICTAL [Concomitant]
     Active Substance: LAMOTRIGINE
     Indication: SEIZURE
     Route: 048
  11. MARIJUANA [Concomitant]
     Active Substance: CANNABIS SATIVA SUBSP. INDICA TOP
     Indication: SEIZURE

REACTIONS (8)
  - Condition aggravated [Recovering/Resolving]
  - Pain [Recovering/Resolving]
  - Abdominal pain upper [Recovering/Resolving]
  - Insomnia [Recovering/Resolving]
  - Gastritis [Not Recovered/Not Resolved]
  - Seizure [Recovered/Resolved]
  - Dry skin [Recovering/Resolving]
  - Weight decreased [Recovering/Resolving]

NARRATIVE: CASE EVENT DATE: 202007
